FAERS Safety Report 4471780-4 (Version None)
Quarter: 2004Q4

REPORT INFORMATION
  Report Type: 
  Country: None (occurrence: None)
  Receive Date: 20041006
  Receipt Date: 20040923
  Transmission Date: 20050328
  Serious: Yes (Hospitalization)
  Sender: FDA-Public Use
  Company Number: 2004235594BR

PATIENT
  Age: 69 Year
  Sex: Female

DRUGS (2)
  1. CELEBREX [Suspect]
     Indication: PAIN IN EXTREMITY
     Dosage: ORAL
     Route: 048
     Dates: start: 20040729, end: 20040730
  2. LEVOTHYROXINE SODIUM [Concomitant]

REACTIONS (6)
  - ASTHENIA [None]
  - CEREBRAL HAEMATOMA [None]
  - HAEMATOMA [None]
  - PARAESTHESIA ORAL [None]
  - PLATELET COUNT DECREASED [None]
  - SOMNOLENCE [None]
